FAERS Safety Report 8343810-0 (Version None)
Quarter: 2012Q1

REPORT INFORMATION
  Report Type: 
  Country: None (occurrence: None)
  Receive Date: 20120330
  Receipt Date: 20111128
  Transmission Date: 20120608
  Serious: Yes (Other)
  Sender: FDA-Public Use
  Company Number: PHEH2011US07453

PATIENT
  Age: 61 Year
  Sex: Male
  Weight: 86.4 kg

DRUGS (4)
  1. NAMENDA [Concomitant]
  2. EXELON [Suspect]
     Indication: AMNESIA
     Dosage: TRANSDERMAL, 9.5 MG/24H, TRANSDERMAL
     Route: 062
  3. SINEMET [Concomitant]
  4. LEXAPRO [Concomitant]

REACTIONS (4)
  - APPLICATION SITE ERYTHEMA [None]
  - APPLICATION SITE VESICLES [None]
  - APPLICATION SITE PRURITUS [None]
  - APPLICATION SITE PAIN [None]
